FAERS Safety Report 18506987 (Version 4)
Quarter: 2020Q4

REPORT INFORMATION
  Report Type: Spontaneous
  Country: US (occurrence: US)
  Receive Date: 20201116
  Receipt Date: 20201209
  Transmission Date: 20210114
  Serious: No
  Sender: FDA-Public Use
  Company Number: US-PFIZER INC-2020446745

PATIENT
  Age: 84 Year
  Sex: Female
  Weight: 61.23 kg

DRUGS (2)
  1. LATANOPROST. [Suspect]
     Active Substance: LATANOPROST
     Indication: GLAUCOMA
     Dosage: 2 DROP, 1X/DAY (1 DROP IN EACH EYE AT NIGHT)
     Route: 047
     Dates: start: 20201030
  2. REFRESH CELLUVISC [Concomitant]
     Active Substance: CARBOXYMETHYLCELLULOSE SODIUM
     Indication: DRY EYE
     Dosage: 2 DROP, 3X/DAY (DROP EACH EYE THREE TIMES DAILY)
     Route: 047

REACTIONS (2)
  - Poor quality product administered [Unknown]
  - Visual impairment [Not Recovered/Not Resolved]

NARRATIVE: CASE EVENT DATE: 20201030
